FAERS Safety Report 9042582 (Version 3)
Quarter: 2013Q2

REPORT INFORMATION
  Report Type: Report from Study
  Country: BE (occurrence: BE)
  Receive Date: 20130129
  Receipt Date: 20130509
  Transmission Date: 20140414
  Serious: Yes (Death)
  Sender: FDA-Public Use
  Company Number: BE-CELGENEUS-013-21880-12122787

PATIENT
  Age: 90 Year
  Sex: Male

DRUGS (27)
  1. REVLIMID [Suspect]
     Indication: MYELODYSPLASTIC SYNDROME
     Dosage: 2.5 MILLIGRAM
     Route: 048
     Dates: start: 201202, end: 201203
  2. PANTOMED [Concomitant]
     Indication: PRODUCT USED FOR UNKNOWN INDICATION
     Dosage: 20 MILLIGRAM
     Route: 065
  3. PANTOMED [Concomitant]
     Dosage: 20 MILLIGRAM
     Route: 065
  4. FOLAVIT [Concomitant]
     Indication: PRODUCT USED FOR UNKNOWN INDICATION
     Dosage: 0.4
     Route: 065
  5. FOLAVIT [Concomitant]
     Dosage: 20 MILLIGRAM
     Route: 065
  6. STILNOCT [Concomitant]
     Indication: PRODUCT USED FOR UNKNOWN INDICATION
     Dosage: 10 MILLIGRAM
     Route: 065
  7. STILNOCT [Concomitant]
     Dosage: 20 MILLIGRAM
     Route: 065
  8. MAGNETOP [Concomitant]
     Indication: PRODUCT USED FOR UNKNOWN INDICATION
     Dosage: 450
     Route: 065
  9. MAGNETOP [Concomitant]
     Dosage: 20 MILLIGRAM
     Route: 065
  10. ASAFLOW [Concomitant]
     Indication: PRODUCT USED FOR UNKNOWN INDICATION
     Dosage: 80
     Route: 065
  11. ASAFLOW [Concomitant]
     Dosage: 20 MILLIGRAM
     Route: 065
  12. EMCONCOR [Concomitant]
     Indication: PRODUCT USED FOR UNKNOWN INDICATION
     Route: 065
  13. EMCONCOR [Concomitant]
     Dosage: 20 MILLIGRAM
     Route: 065
  14. BURINEX [Concomitant]
     Indication: PRODUCT USED FOR UNKNOWN INDICATION
     Dosage: 2 MILLIGRAM
     Route: 065
  15. INDAPAMIDE [Concomitant]
     Indication: PRODUCT USED FOR UNKNOWN INDICATION
     Dosage: 2.5 MILLIGRAM
     Route: 065
  16. INDAPAMIDE [Concomitant]
     Dosage: 20 MILLIGRAM
     Route: 065
  17. FRAXIPARINE [Concomitant]
     Indication: PRODUCT USED FOR UNKNOWN INDICATION
     Dosage: 0.3
     Route: 058
  18. FRAXIPARINE [Concomitant]
     Dosage: 20 MILLIGRAM
     Route: 065
  19. CORSODYL [Concomitant]
     Indication: PRODUCT USED FOR UNKNOWN INDICATION
     Route: 065
  20. CORSODYL [Concomitant]
     Dosage: 20 MILLIGRAM
     Route: 065
  21. FORLAX [Concomitant]
     Indication: PRODUCT USED FOR UNKNOWN INDICATION
     Route: 065
  22. FORLAX [Concomitant]
     Dosage: 20 MILLIGRAM
     Route: 065
  23. CORUNO [Concomitant]
     Indication: PRODUCT USED FOR UNKNOWN INDICATION
     Dosage: 16 MILLIGRAM
     Route: 065
  24. COLCHICINE [Concomitant]
     Indication: PRODUCT USED FOR UNKNOWN INDICATION
     Route: 065
  25. FOLAX [Concomitant]
     Indication: PRODUCT USED FOR UNKNOWN INDICATION
     Dosage: 1
     Route: 065
  26. CORDARONE [Concomitant]
     Indication: PRODUCT USED FOR UNKNOWN INDICATION
     Dosage: 200 MILLIGRAM
     Route: 065
  27. LEVOCETIRIZINE [Concomitant]
     Indication: PRODUCT USED FOR UNKNOWN INDICATION
     Route: 065

REACTIONS (1)
  - General physical health deterioration [Fatal]
